FAERS Safety Report 4496845-2 (Version None)
Quarter: 2004Q4

REPORT INFORMATION
  Report Type: 
  Country: None (occurrence: None)
  Receive Date: 20041109
  Receipt Date: 20040716
  Transmission Date: 20050328
  Serious: Yes (Other)
  Sender: FDA-Public Use
  Company Number: JP-GLAXOSMITHKLINE-B0340346A

PATIENT
  Age: 66 Year
  Sex: Female
  Weight: 40 kg

DRUGS (5)
  1. PAXIL [Suspect]
     Indication: DEPRESSION
     Route: 048
     Dates: start: 20040621, end: 20040705
  2. AMOXAN [Suspect]
     Indication: DEPRESSION
     Route: 048
     Dates: start: 20040113
  3. SYMMETREL [Concomitant]
     Indication: PARKINSON'S DISEASE
     Dosage: 100MG PER DAY
     Route: 048
     Dates: start: 20021106
  4. LENDORMIN [Concomitant]
     Indication: INSOMNIA
     Dosage: 25MG PER DAY
     Route: 048
     Dates: start: 20021106
  5. AKINETON [Concomitant]
     Indication: PARKINSON'S DISEASE
     Dosage: 3MG PER DAY
     Route: 065
     Dates: start: 20021106

REACTIONS (14)
  - AGITATION [None]
  - ARRHYTHMIA [None]
  - BLOOD PRESSURE INCREASED [None]
  - DEMENTIA [None]
  - FAECAL INCONTINENCE [None]
  - GAIT DISTURBANCE [None]
  - HYPERHIDROSIS [None]
  - HYPERTENSION [None]
  - IRRITABILITY [None]
  - PARKINSONISM [None]
  - PYREXIA [None]
  - SEROTONIN SYNDROME [None]
  - TREMOR [None]
  - URINARY INCONTINENCE [None]
